FAERS Safety Report 14031421 (Version 2)
Quarter: 2017Q4

REPORT INFORMATION
  Report Type: Spontaneous
  Country: IT (occurrence: IT)
  Receive Date: 20171002
  Receipt Date: 20171002
  Transmission Date: 20180321
  Serious: Yes (Other)
  Sender: FDA-Public Use
  Company Number: IT-MYLANLABS-2017M1060065

PATIENT
  Age: 35 Year
  Sex: Female

DRUGS (1)
  1. ALMOTRIPTAN MYLAN 12,5 MG COMPRESSE RIVESTITE CON FILM [Suspect]
     Active Substance: ALMOTRIPTAN
     Indication: MIGRAINE
     Dosage: UNK
     Dates: start: 20170501, end: 20170801

REACTIONS (1)
  - Drug ineffective [Unknown]

NARRATIVE: CASE EVENT DATE: 20170501
